FAERS Safety Report 6077310-8 (Version None)
Quarter: 2009Q1

REPORT INFORMATION
  Report Type: 
  Country: None (occurrence: None)
  Receive Date: 20090213
  Receipt Date: 20090206
  Transmission Date: 20090719
  Serious: Yes (Other)
  Sender: FDA-Public Use
  Company Number: B0534344A

PATIENT
  Sex: Male
  Weight: 90 kg

DRUGS (5)
  1. MALARONE [Suspect]
     Indication: MALARIA PROPHYLAXIS
     Route: 048
  2. LIPITOR [Concomitant]
     Dosage: 80MG PER DAY
     Route: 048
  3. ASCAL [Concomitant]
     Indication: THROMBOSIS PROPHYLAXIS
     Dosage: 100MG PER DAY
  4. METOPROLOL TARTRATE [Concomitant]
     Indication: HYPERTENSION
     Dosage: 100MG PER DAY
  5. OMEPRAZOLE [Concomitant]
     Dosage: 40MG PER DAY
     Route: 048

REACTIONS (3)
  - EYE HAEMORRHAGE [None]
  - IRITIS [None]
  - UVEITIS [None]
